FAERS Safety Report 14996300 (Version 2)
Quarter: 2018Q2

REPORT INFORMATION
  Report Type: Spontaneous
  Country: ES (occurrence: ES)
  Receive Date: 20180611
  Receipt Date: 20180615
  Transmission Date: 20180711
  Serious: Yes (Hospitalization, Other)
  Sender: FDA-Public Use
  Company Number: ES-JNJFOC-20180608321

PATIENT
  Age: 74 Year
  Sex: Male

DRUGS (6)
  1. URBASON [Concomitant]
     Active Substance: METHYLPREDNISOLONE
     Dosage: 10 MG EVERY 12 HOURS DURING 2 DAYS, SUBSEQUENTLY 10 MG/24 HOURS
     Route: 065
  2. PARAPRESS [Concomitant]
     Route: 065
  3. ALDACTONE [Concomitant]
     Active Substance: SPIRONOLACTONE
     Dosage: AT BREAKFAST
     Route: 065
  4. OMEPRAZOLE. [Concomitant]
     Active Substance: OMEPRAZOLE
     Route: 065
  5. IMBRUVICA [Suspect]
     Active Substance: IBRUTINIB
     Indication: MANTLE CELL LYMPHOMA
     Route: 048
     Dates: start: 20171115, end: 20180116
  6. ALLOPURINOL. [Concomitant]
     Active Substance: ALLOPURINOL
     Route: 065

REACTIONS (4)
  - Respiratory failure [Unknown]
  - Candida infection [Unknown]
  - Cardiac failure [Recovering/Resolving]
  - Chronic obstructive pulmonary disease [Unknown]

NARRATIVE: CASE EVENT DATE: 20180111
